FAERS Safety Report 18966466 (Version 1)
Quarter: 2021Q1

REPORT INFORMATION
  Report Type: Spontaneous
  Country: GB (occurrence: GB)
  Receive Date: 20210303
  Receipt Date: 20210303
  Transmission Date: 20210420
  Serious: Yes (Other)
  Sender: FDA-Public Use
  Company Number: GB-TEVA-2021-GB-1883332

PATIENT
  Age: 39 Year
  Sex: Female
  Weight: 56 kg

DRUGS (5)
  1. METHOCARBAMOL. [Concomitant]
     Active Substance: METHOCARBAMOL
     Dosage: 8 DOSAGE FORMS DAILY;   MAY CAUSE DROWSINESS
     Dates: start: 20210216
  2. DIAZEPAM. [Concomitant]
     Active Substance: DIAZEPAM
     Dosage: TAKE ONE AT NIGHT AS NEEDED
     Dates: start: 20210105
  3. SUMATRIPTAN. [Concomitant]
     Active Substance: SUMATRIPTAN
     Dosage: ONE TABLET TO BE TAKEN AT THE ONSET OF MIGRAINE ATTACK. CAN REPEAT DOSE AFTER 2 HOURS IF MIGRAINE RE
     Dates: start: 20210128
  4. TOPIRAMATE. [Concomitant]
     Active Substance: TOPIRAMATE
     Dosage: ONE TO BE TAKEN EACH DAY INCREASING BY ONE EVERY TWO WEEKS UNTIL A DOSE OF THREE TABLETS TWICE A DAY
     Dates: start: 20210128
  5. TOPIRAMATE. [Suspect]
     Active Substance: TOPIRAMATE
     Route: 065

REACTIONS (1)
  - Mouth ulceration [Recovering/Resolving]

NARRATIVE: CASE EVENT DATE: 20210205
